FAERS Safety Report 18251296 (Version 1)
Quarter: 2020Q3

REPORT INFORMATION
  Report Type: Other
  Country: US (occurrence: US)
  Receive Date: 20200910
  Receipt Date: 20200910
  Transmission Date: 20201103
  Serious: Yes (Other)
  Sender: FDA-Public Use
  Company Number: US-ROCHE-2668104

PATIENT
  Age: 65 Year
  Sex: Male
  Weight: 89.89 kg

DRUGS (30)
  1. REBIF [Suspect]
     Active Substance: INTERFERON BETA-1A
     Indication: MULTIPLE SCLEROSIS
     Route: 065
  2. COPAXONE [Suspect]
     Active Substance: GLATIRAMER ACETATE
     Indication: MULTIPLE SCLEROSIS
     Route: 065
  3. ATORVASTATIN [Concomitant]
     Active Substance: ATORVASTATIN
     Dates: start: 20200723
  4. TECFIDERA [Suspect]
     Active Substance: DIMETHYL FUMARATE
     Indication: MULTIPLE SCLEROSIS
     Dosage: STARTING DOSE?THEN (MAINTENANCE DOSE 240 MG)
     Route: 048
     Dates: start: 20141203
  5. BETASERON [Suspect]
     Active Substance: INTERFERON BETA-1B
     Indication: MULTIPLE SCLEROSIS
     Route: 065
  6. MYRBETRIQ [Concomitant]
     Active Substance: MIRABEGRON
     Dates: start: 20200214
  7. OXCARBAZEPINE. [Concomitant]
     Active Substance: OXCARBAZEPINE
     Dates: start: 20200214
  8. ROPINIROLE. [Concomitant]
     Active Substance: ROPINIROLE
     Dosage: TAKE 1 TAB TID FOR 7 DAYS, 2 TAB IN MORNING?1 TAB IN AM AND 1 TAB IN NOON FOR 7 DAY
     Dates: start: 20200710
  9. AZITHROMYCIN ANHYDROUS. [Concomitant]
     Active Substance: AZITHROMYCIN ANHYDROUS
     Dates: start: 20190523
  10. FINASTERIDE. [Concomitant]
     Active Substance: FINASTERIDE
     Dates: start: 20200708
  11. SHINGRIX [Concomitant]
     Active Substance: RECOMBINANT VARICELLA ZOSTER VIRUS (VZV) GLYCOPROTEIN E
     Dosage: 50 MCG/0.5ML IM SUSPENSION
     Dates: start: 20200604
  12. SOLIFENACIN [Concomitant]
     Active Substance: SOLIFENACIN
     Dates: start: 20200214
  13. TYSABRI [Suspect]
     Active Substance: NATALIZUMAB
     Dosage: INFUSED OVER 1 HOUR
     Route: 042
     Dates: start: 20080523, end: 20100208
  14. TECFIDERA [Suspect]
     Active Substance: DIMETHYL FUMARATE
     Dosage: STARTING DOSE ?THEN WITH ON AN UNKNOWN DATE: (MAINTENANCE DOSE 240 MG)
     Route: 048
  15. ROPINIROLE. [Concomitant]
     Active Substance: ROPINIROLE
     Dates: start: 20200604
  16. TECFIDERA [Suspect]
     Active Substance: DIMETHYL FUMARATE
     Dosage: THEN WITH ON AN UNKNOWN DATE: (MAINTENANCE DOSE 240 MG)
     Route: 048
     Dates: start: 20150422
  17. TECFIDERA [Suspect]
     Active Substance: DIMETHYL FUMARATE
     Dosage: 120 MG CAPSULE 14 DAY THEN 240 MG FOR 46 DAYS
     Route: 048
     Dates: start: 20200731
  18. RITUXAN [Suspect]
     Active Substance: RITUXIMAB
     Indication: MULTIPLE SCLEROSIS
     Route: 065
  19. METRONIDAZOLE. [Concomitant]
     Active Substance: METRONIDAZOLE
     Dates: start: 20200425
  20. ASPIRIN. [Concomitant]
     Active Substance: ASPIRIN
     Dates: start: 20200604
  21. BACLOFEN. [Concomitant]
     Active Substance: BACLOFEN
     Dosage: TAKE 1 TABLET THREE TIMES DAILY FOR 7 DAYS?TAKE 2 TABLET THREE TIMES DAILY FOR 7 DAYS?TAKE 3 TABLET
     Dates: start: 20200717
  22. CEFDINIR. [Concomitant]
     Active Substance: CEFDINIR
     Dates: start: 20200425
  23. ERGOCALCIFEROL. [Concomitant]
     Active Substance: ERGOCALCIFEROL
     Dosage: 1250 MCG (50000) UNIT
     Route: 048
  24. HYDROCHLOROTHIAZIDE. [Concomitant]
     Active Substance: HYDROCHLOROTHIAZIDE
     Dates: start: 20200708
  25. METHYLPREDNISOLONE. [Concomitant]
     Active Substance: METHYLPREDNISOLONE
     Dates: start: 20190523
  26. FLUCELVAX QUADRIVALENT [Concomitant]
     Dosage: 60 MCG (15 MCG 4 TIME) 0.5 ML IM SYRING
     Dates: start: 20190923
  27. MODAFINIL. [Concomitant]
     Active Substance: MODAFINIL
     Dosage: 2 TAB IN MORNING BY MOUTH
     Route: 048
     Dates: start: 20200810
  28. TAMSULOSIN [Concomitant]
     Active Substance: TAMSULOSIN
     Dates: start: 20200706
  29. OCREVUS [Suspect]
     Active Substance: OCRELIZUMAB
     Indication: MULTIPLE SCLEROSIS
     Route: 065
  30. TYSABRI [Suspect]
     Active Substance: NATALIZUMAB
     Indication: MULTIPLE SCLEROSIS
     Dosage: INFUSED OVER 1 HOUR
     Route: 042
     Dates: start: 20110816, end: 20130305

REACTIONS (9)
  - Ophthalmoplegia [Unknown]
  - Sleep apnoea syndrome [Unknown]
  - Hypertension [Unknown]
  - JC polyomavirus test positive [Unknown]
  - Benign prostatic hyperplasia [Unknown]
  - Restless legs syndrome [Unknown]
  - Dyslipidaemia [Unknown]
  - Depression [Unknown]
  - Memory impairment [Unknown]

NARRATIVE: CASE EVENT DATE: 20200604
